FAERS Safety Report 23803532 (Version 2)
Quarter: 2024Q3

REPORT INFORMATION
  Report Type: Report from Study
  Country: TH (occurrence: TH)
  Receive Date: 20240501
  Receipt Date: 20240704
  Transmission Date: 20241016
  Serious: Yes (Hospitalization)
  Sender: NOVARTIS
  Company Number: TH-002147023-NVSC2024TH091231

PATIENT
  Sex: Female

DRUGS (1)
  1. KISQALI [Suspect]
     Active Substance: RIBOCICLIB
     Indication: Breast cancer metastatic
     Dosage: 200 MG QD (1 TABLET), ONCE DAILY  AFTER  BREAKFAST,  TAKE FOR 21  DAYS THEN  SKIP FOR 7  DAYS
     Route: 048

REACTIONS (5)
  - Gastrointestinal inflammation [Unknown]
  - Vomiting [Unknown]
  - Constipation [Unknown]
  - Gastrointestinal oedema [Unknown]
  - Off label use [Unknown]
